FAERS Safety Report 9145438 (Version 2)
Quarter: 2013Q1

REPORT INFORMATION
  Report Type: Spontaneous
  Country: US (occurrence: None)
  Receive Date: 20130225
  Receipt Date: 20130301
  Transmission Date: 20140127
  Serious: Yes (Death)
  Sender: FDA-Public Use
  Company Number: 2013-0293

PATIENT
  Sex: Female

DRUGS (4)
  1. KYPROLIS [Suspect]
     Indication: PLASMA CELL MYELOMA
     Dates: start: 20130116, end: 20130131
  2. DECADRON (DEXAMETHASONE) (DEXAMETHASONE) [Concomitant]
  3. PROAMATINE (MIDODRINE HYDROCHLORIDE) (MIDODRINE HYDROCHLORIDE) [Concomitant]
  4. FLORINEF (FLUDROCORTISONE ACETATE) (FLUDROCORTISONE ACETATE) [Concomitant]

REACTIONS (2)
  - Death [None]
  - Cerebrovascular accident [None]
